FAERS Safety Report 7985450-9 (Version None)
Quarter: 2011Q4

REPORT INFORMATION
  Report Type: 
  Country: None (occurrence: None)
  Receive Date: 20111216
  Receipt Date: 20111213
  Transmission Date: 20120403
  Serious: Yes (Other)
  Sender: FDA-Public Use
  Company Number: US-ABBOTT-11P-163-0882969-00

PATIENT
  Sex: Female
  Weight: 92.616 kg

DRUGS (6)
  1. METHOTREXATE [Concomitant]
     Indication: PSORIATIC ARTHROPATHY
     Dates: start: 20090101, end: 20100901
  2. ACETAMINOPHEN [Concomitant]
     Indication: HEADACHE
  3. UNKNOWN ANTIBIOTICS [Concomitant]
     Indication: SURGERY
     Dates: start: 20100928
  4. HUMIRA [Suspect]
     Indication: PSORIATIC ARTHROPATHY
     Dates: start: 20090101, end: 20100901
  5. DILAUDID [Concomitant]
     Indication: FIBROMYALGIA
  6. OXYCONTIN [Concomitant]
     Indication: FIBROMYALGIA

REACTIONS (9)
  - PROCEDURAL PAIN [None]
  - INCISION SITE PAIN [None]
  - PSORIASIS [None]
  - BREAST TENDERNESS [None]
  - UTERINE SPASM [None]
  - POSTPARTUM DEPRESSION [None]
  - PAIN [None]
  - ECTOPIC PREGNANCY [None]
  - BACK PAIN [None]
